FAERS Safety Report 10372602 (Version 2)
Quarter: 2014Q4

REPORT INFORMATION
  Report Type: Spontaneous
  Country: US (occurrence: US)
  Receive Date: 20140808
  Receipt Date: 20141205
  Transmission Date: 20150528
  Serious: No
  Sender: FDA-Public Use
  Company Number: US-BRISTOL-MYERS SQUIBB COMPANY-21117379

PATIENT
  Age: 57 Year
  Sex: Female

DRUGS (17)
  1. LYRICA [Concomitant]
     Active Substance: PREGABALIN
  2. HYOSCYAMINE [Concomitant]
     Active Substance: HYOSCYAMINE
  3. MECLIZINE [Concomitant]
     Active Substance: MECLIZINE\MECLIZINE HYDROCHLORIDE
  4. OXYCODONE [Concomitant]
     Active Substance: OXYCODONE
  5. METAXALONE. [Concomitant]
     Active Substance: METAXALONE
  6. ALPRAZOLAM. [Concomitant]
     Active Substance: ALPRAZOLAM
  7. TRAMADOL [Concomitant]
     Active Substance: TRAMADOL
  8. MAGNESIUM [Concomitant]
     Active Substance: MAGNESIUM
  9. TRAZODONE HYDROCHLORIDE. [Concomitant]
     Active Substance: TRAZODONE HYDROCHLORIDE
  10. LEVOTHYROXINE [Concomitant]
     Active Substance: LEVOTHYROXINE
  11. GABAPENTIN. [Concomitant]
     Active Substance: GABAPENTIN
  12. CYCLOBENZAPRINE [Concomitant]
     Active Substance: CYCLOBENZAPRINE
  13. CITALOPRAM [Concomitant]
     Active Substance: CITALOPRAM HYDROBROMIDE
  14. SPRYCEL [Suspect]
     Active Substance: DASATINIB
     Indication: CHRONIC MYELOID LEUKAEMIA
     Route: 048
  15. PANTOPRAZOLE [Concomitant]
     Active Substance: PANTOPRAZOLE SODIUM
  16. VITAMIN B COMPLEX [Concomitant]
     Active Substance: CYANOCOBALAMIN\DEXPANTHENOL\NIACINAMIDE\PYRIDOXINE HYDROCHLORIDE\RIBOFLAVIN 5^-PHOSPHATE SODIUM\THIAMINE HYDROCHLORIDE\VITAMIN B COMPLEX
  17. CEPHALEXIN. [Concomitant]
     Active Substance: CEPHALEXIN

REACTIONS (6)
  - Toothache [Unknown]
  - Insomnia [Unknown]
  - Oral pain [Unknown]
  - Rash [Unknown]
  - Anxiety [Unknown]
  - Headache [Not Recovered/Not Resolved]
